FAERS Safety Report 7982354-2 (Version None)
Quarter: 2011Q4

REPORT INFORMATION
  Report Type: 
  Country: None (occurrence: None)
  Receive Date: 20111215
  Receipt Date: 20111205
  Transmission Date: 20120403
  Serious: Yes (Hospitalization)
  Sender: FDA-Public Use
  Company Number: PHHY2011FR107428

PATIENT
  Sex: Male

DRUGS (42)
  1. NEORAL [Suspect]
     Dosage: 100 MG, BID
     Dates: start: 20100208, end: 20100209
  2. NEORAL [Suspect]
     Dosage: 100 MG IN THE MORNING AND 125 MG IN THE EVENING
     Dates: start: 20100210
  3. CEFOTAXIME [Suspect]
     Dosage: 1 DF, QD
     Dates: end: 20100130
  4. KAYEXALATE [Concomitant]
     Dosage: 1 SPOON ON DAY WITHOUT DIALYSIS
  5. FLUTICASONE PROPIONATE/SALMETEROL [Concomitant]
     Dosage: 1 DF, BID
  6. SECTRAL [Concomitant]
     Dosage: 200 MG, QD
  7. PRAVASTATIN [Concomitant]
     Dosage: 20 MG, QD
  8. EUCALCIC [Concomitant]
     Dosage: 1 DF, BID
  9. IRON [Concomitant]
     Dosage: 50 MG, MONTHLY DURING DIALYSIS
  10. EUPRESSYL [Concomitant]
     Dosage: 60 MG, TID
  11. NEORAL [Suspect]
     Dosage: 175 MG, UNK
     Dates: start: 20100130
  12. NEORAL [Suspect]
     Dosage: 125 MG, BID
     Dates: start: 20100204
  13. VANCOMYCIN [Suspect]
     Dosage: 1 G, QD
  14. ESOMEPRAZOLE MAGNESIUM [Concomitant]
     Dosage: 20 MG, QD
  15. ASPIRIN [Concomitant]
     Dosage: 160 MG, QD
  16. VENTOLIN [Concomitant]
  17. PREDNISONE TAB [Concomitant]
     Dosage: 20 MG, UNK
     Dates: start: 20011228
  18. BACTRIM [Concomitant]
     Dosage: 1 DF, QD
     Dates: start: 20100211
  19. NEORAL [Suspect]
     Dosage: 125 MG IN THE MORNING AND 100 MG IN THE EVENING
     Dates: start: 20100205
  20. SIMULECT [Suspect]
     Dosage: UNK
     Dates: start: 20101229
  21. PREDNISONE TAB [Concomitant]
     Dosage: 15 MG, QD
     Dates: start: 20100211
  22. SIMULECT [Suspect]
     Indication: RENAL TRANSPLANT
  23. ARANESP [Concomitant]
     Dosage: 10 UG, WEEKLY DURING DIALYSIS
  24. SODIUM BICARBONATE [Concomitant]
     Dosage: 2 G, UNK
  25. NEORAL [Suspect]
     Dosage: 100 MG, BID
     Dates: start: 20100206
  26. NEORAL [Suspect]
     Dosage: 100 MG, UNK
     Dates: start: 20100211
  27. MYFORTIC [Suspect]
     Indication: RENAL TRANSPLANT
     Dosage: 3 DF, BID
     Dates: start: 20100126
  28. AMLODIPINE BESYLATE [Concomitant]
     Dosage: 10 MG, QD
  29. LASIX [Concomitant]
     Dosage: 500 MG, QD
  30. FLUTICASONE PROPIONATE/SALMETEROL [Concomitant]
     Dosage: 1 PUFF BID
  31. NEORAL [Suspect]
     Indication: RENAL TRANSPLANT
     Dosage: 250 MG, UNK
  32. NEORAL [Suspect]
     Dosage: 175 MG, UNK
     Dates: start: 20100201
  33. NEORAL [Suspect]
     Dosage: 150 MG, BID
     Dates: start: 20100202
  34. NEORAL [Suspect]
     Dosage: 150 MG IN THE MORNING AND 125 MG IN THE EVENING
     Dates: start: 20100203
  35. NEORAL [Suspect]
     Dosage: 100 MG, UNK
     Dates: start: 20100207
  36. MYFORTIC [Suspect]
     Dosage: 2 DF, BID
     Dates: start: 20100211
  37. CELECTOL [Concomitant]
     Dosage: 200 MG, QD
  38. NEORAL [Suspect]
     Dosage: 175 MG, BID
     Dates: start: 20100130
  39. UN-ALFA [Concomitant]
     Dosage: 1 UG, QD
  40. IRBESARTAN [Concomitant]
     Dosage: 300 MG, QD
  41. FERROUS SULFATE TAB [Concomitant]
     Dosage: 80 MG, BID
  42. SPECIAFOLDINE [Concomitant]
     Dosage: 10 MG, BID

REACTIONS (6)
  - IMMUNOSUPPRESSANT DRUG LEVEL DECREASED [None]
  - OVERDOSE [None]
  - HYPERCREATININAEMIA [None]
  - RENAL FAILURE [None]
  - URINE OUTPUT DECREASED [None]
  - RENAL IMPAIRMENT [None]
